FAERS Safety Report 7312031-2 (Version None)
Quarter: 2011Q1

REPORT INFORMATION
  Report Type: 
  Country: None (occurrence: None)
  Receive Date: 20110224
  Receipt Date: 20110210
  Transmission Date: 20110831
  Serious: Yes (Death)
  Sender: FDA-Public Use
  Company Number: US-SHIONOGI USA, INC-2011000015

PATIENT
  Age: 57 Year
  Sex: Male

DRUGS (7)
  1. ACETAMINOPHEN [Suspect]
  2. NAPROXEN [Suspect]
  3. IBUPROFEN [Suspect]
  4. FENOFIBRATE [Suspect]
  5. ETHANOL [Suspect]
  6. COLCHICINE [Suspect]
  7. CHOLESTYRAMINE [Suspect]

REACTIONS (1)
  - COMPLETED SUICIDE [None]
